FAERS Safety Report 5298395-2 (Version None)
Quarter: 2007Q2

REPORT INFORMATION
  Report Type: 
  Country: None (occurrence: None)
  Receive Date: 20070416
  Receipt Date: 20070404
  Transmission Date: 20071010
  Serious: Yes (Other)
  Sender: FDA-Public Use
  Company Number: CA-GILEAD-2006-0009227

PATIENT
  Sex: Male
  Weight: 62.5 kg

DRUGS (5)
  1. ADEFOVIR DIPIVOXIL [Suspect]
     Indication: HEPATITIS B
     Route: 048
     Dates: start: 20050914, end: 20060109
  2. AMOXICILLIN [Concomitant]
     Indication: DIARRHOEA
     Route: 048
     Dates: start: 20051229, end: 20060108
  3. AMOXICILLIN [Concomitant]
     Indication: PYREXIA
  4. IBUPROFEN [Concomitant]
     Indication: PAIN
     Route: 048
     Dates: start: 20051229, end: 20060122
  5. IBUPROFEN [Concomitant]
     Indication: PYREXIA

REACTIONS (1)
  - MYOPATHY TOXIC [None]
